FAERS Safety Report 13130559 (Version 2)
Quarter: 2017Q2

REPORT INFORMATION
  Report Type: Spontaneous
  Country: CN (occurrence: CN)
  Receive Date: 20170119
  Receipt Date: 20170602
  Transmission Date: 20170830
  Serious: Yes (Hospitalization, Other)
  Sender: FDA-Public Use
  Company Number: CN-PFIZER INC-2017018785

PATIENT
  Sex: Female

DRUGS (3)
  1. SUTENT [Suspect]
     Active Substance: SUNITINIB MALATE
     Indication: RENAL CANCER
     Dosage: 4 DF, 1X/DAY (CAPSULE)
     Route: 048
     Dates: start: 20160906, end: 201610
  2. SUTENT [Suspect]
     Active Substance: SUNITINIB MALATE
     Dosage: 4 DF, 1X/DAY (CAPSULE)
     Route: 048
     Dates: start: 201611, end: 201612
  3. SUTENT [Suspect]
     Active Substance: SUNITINIB MALATE
     Dosage: 3 DF, 1X/DAY (CAPSULE)
     Route: 048
     Dates: start: 201612, end: 201701

REACTIONS (13)
  - Eyelid thickening [Recovering/Resolving]
  - Hypertension [Recovering/Resolving]
  - Intestinal haemorrhage [Recovered/Resolved]
  - Tonsillitis [Recovered/Resolved]
  - Ocular hyperaemia [Recovering/Resolving]
  - Swelling face [Recovering/Resolving]
  - Listless [Recovering/Resolving]
  - Pallor [Recovering/Resolving]
  - Diarrhoea [Recovering/Resolving]
  - Large intestinal ulcer [Recovering/Resolving]
  - Yellow skin [Recovering/Resolving]
  - Bradycardia [Recovered/Resolved]
  - Palmar-plantar erythrodysaesthesia syndrome [Recovering/Resolving]

NARRATIVE: CASE EVENT DATE: 201610
